FAERS Safety Report 6508822-8 (Version None)
Quarter: 2009Q4

REPORT INFORMATION
  Report Type: 
  Country: None (occurrence: None)
  Receive Date: 20091221
  Receipt Date: 20090820
  Transmission Date: 20100525
  Serious: No
  Sender: FDA-Public Use
  Company Number: US-ASTRAZENECA-2009SE09301

PATIENT
  Age: 78 Year
  Sex: Female
  Weight: 62.1 kg

DRUGS (3)
  1. CRESTOR [Suspect]
     Indication: BLOOD CHOLESTEROL INCREASED
     Route: 048
     Dates: start: 20090810, end: 20090820
  2. ANTIBIOTICS [Concomitant]
  3. COUGH MEDICINE [Concomitant]

REACTIONS (2)
  - OROPHARYNGEAL PAIN [None]
  - RASH [None]
